FAERS Safety Report 23162916 (Version 4)
Quarter: 2024Q1

REPORT INFORMATION
  Report Type: Spontaneous
  Country: US (occurrence: US)
  Receive Date: 20231109
  Receipt Date: 20240307
  Transmission Date: 20240410
  Serious: Yes (Hospitalization)
  Sender: FDA-Public Use
  Company Number: US-BEH-2023164838

PATIENT
  Age: 44 Year
  Sex: Female

DRUGS (17)
  1. ZEMAIRA [Suspect]
     Active Substance: .ALPHA.1-PROTEINASE INHIBITOR HUMAN
     Indication: Body mass index increased
     Dosage: 90 MILLIGRAM/KILOGRAM, QW
     Route: 042
  2. ZEMAIRA [Suspect]
     Active Substance: .ALPHA.1-PROTEINASE INHIBITOR HUMAN
     Dosage: 90 MILLIGRAM/KILOGRAM, QW
     Route: 042
  3. TRAMADOL [Concomitant]
     Active Substance: TRAMADOL\TRAMADOL HYDROCHLORIDE
     Indication: Premedication
  4. TRAMADOL [Concomitant]
     Active Substance: TRAMADOL\TRAMADOL HYDROCHLORIDE
     Indication: Premedication
  5. BENADRYL [Concomitant]
     Active Substance: DIPHENHYDRAMINE HYDROCHLORIDE
  6. TYLENOL [Concomitant]
     Active Substance: ACETAMINOPHEN
  7. MIDODRINE HYDROCHLORIDE [Concomitant]
     Active Substance: MIDODRINE HYDROCHLORIDE
     Dosage: 2.5 MILLIGRAM
  8. ALBUTEROL SULFATE [Concomitant]
     Active Substance: ALBUTEROL SULFATE
     Dosage: 2.5 MILLIGRAM
  9. CETIRIZINE HCL [Concomitant]
     Active Substance: CETIRIZINE HYDROCHLORIDE
     Dosage: 10 MILLIGRAM
  10. FLUTICASONE [Concomitant]
     Active Substance: FLUTICASONE
     Dosage: 50 MICROGRAM
  11. LEXAPRO [Concomitant]
     Active Substance: ESCITALOPRAM OXALATE
     Dosage: 10 MILLIGRAM
  12. MONTELUKAST [Concomitant]
     Active Substance: MONTELUKAST SODIUM
     Dosage: 10 MILLIGRAM
  13. VITAMINS [Concomitant]
     Active Substance: VITAMINS
  14. TRELEGY ELLIPTA [Concomitant]
     Active Substance: FLUTICASONE FUROATE\UMECLIDINIUM BROMIDE\VILANTEROL TRIFENATATE
  15. OXYGEN [Concomitant]
     Active Substance: OXYGEN
  16. VALIUM [Concomitant]
     Active Substance: DIAZEPAM
     Dosage: UNK, BID
  17. VALIUM [Concomitant]
     Active Substance: DIAZEPAM
     Dosage: UNK, TID

REACTIONS (20)
  - No adverse event [Not Recovered/Not Resolved]
  - Off label use [Not Recovered/Not Resolved]
  - Euphoric mood [Unknown]
  - Energy increased [Unknown]
  - Psychomotor hyperactivity [Unknown]
  - Asthenia [Unknown]
  - Lethargy [Unknown]
  - Feeling abnormal [Unknown]
  - Pain [Unknown]
  - Musculoskeletal stiffness [Unknown]
  - Hypotension [Unknown]
  - Cough [Unknown]
  - Productive cough [Unknown]
  - Feeling abnormal [Unknown]
  - Depression [Unknown]
  - Nervousness [Unknown]
  - Dyspnoea [Unknown]
  - Oxygen saturation decreased [Unknown]
  - Dyspnoea [Unknown]
  - Oxygen saturation decreased [Unknown]

NARRATIVE: CASE EVENT DATE: 20230101
